FAERS Safety Report 11665420 (Version 1)
Quarter: 2015Q4

REPORT INFORMATION
  Report Type: Report from Study
  Country: JP (occurrence: JP)
  Receive Date: 20151027
  Receipt Date: 20151027
  Transmission Date: 20160304
  Serious: Yes (Hospitalization)
  Sender: FDA-Public Use
  Company Number: JP-AMGEN-JPNCT2015112771

PATIENT
  Age: 87 Year
  Sex: Male
  Weight: 59 kg

DRUGS (9)
  1. MICARDIS [Suspect]
     Active Substance: TELMISARTAN
     Indication: HYPERTENSION
     Dosage: 40 MG, QD
     Route: 048
     Dates: start: 20100414
  2. DARBEPOETIN ALFA [Suspect]
     Active Substance: DARBEPOETIN ALFA
     Indication: CHRONIC KIDNEY DISEASE
     Dosage: 120 MUG, Q4WK
     Route: 065
     Dates: start: 20150729
  3. OPALMON [Suspect]
     Active Substance: LIMAPROST
     Indication: LUMBAR SPINAL STENOSIS
     Dosage: 5 MUG, TID
     Route: 048
     Dates: start: 20140702
  4. LASIX [Suspect]
     Active Substance: FUROSEMIDE
     Indication: OEDEMA DUE TO RENAL DISEASE
     Dosage: 20 MG, QD
     Route: 048
     Dates: start: 20150826
  5. CELECOX [Suspect]
     Active Substance: CELECOXIB
     Indication: PAIN
     Dosage: 100 MG, BID
     Route: 048
     Dates: start: 20150615
  6. LYRICA [Suspect]
     Active Substance: PREGABALIN
     Indication: NEUROPATHY PERIPHERAL
     Dosage: 75 MG, QD
     Route: 048
     Dates: start: 20150729
  7. FLIVAS [Suspect]
     Active Substance: NAFTOPIDIL
     Indication: NEUROGENIC BLADDER
     Dosage: 50 MG, QD
     Route: 048
     Dates: start: 20130508
  8. METHYCOBAL [Suspect]
     Active Substance: METHYLCOBALAMIN
     Indication: NEUROPATHY PERIPHERAL
     Dosage: 500 MUG, TID
     Route: 048
     Dates: start: 20140702
  9. ALFAROL [Suspect]
     Active Substance: ALFACALCIDOL
     Indication: HYPERPARATHYROIDISM SECONDARY
     Dosage: 0.25 MUG, QD
     Route: 048
     Dates: start: 20140702

REACTIONS (1)
  - Pneumonia [Not Recovered/Not Resolved]

NARRATIVE: CASE EVENT DATE: 20150924
